FAERS Safety Report 19835281 (Version 1)
Quarter: 2021Q3

REPORT INFORMATION
  Report Type: Spontaneous
  Country: US (occurrence: US)
  Receive Date: 20210915
  Receipt Date: 20210915
  Transmission Date: 20211014
  Serious: No
  Sender: FDA-Public Use
  Company Number: US-PFIZER INC-2021493677

PATIENT
  Age: 82 Year
  Sex: Female
  Weight: 64.41 kg

DRUGS (2)
  1. VYNDAMAX [Suspect]
     Active Substance: TAFAMIDIS
     Indication: CARDIAC AMYLOIDOSIS
     Dosage: 61 MG, ONCE DAILY
     Route: 048
  2. TYLENOL [Concomitant]
     Active Substance: ACETAMINOPHEN
     Dosage: UNK

REACTIONS (2)
  - Seasonal allergy [Unknown]
  - Alopecia [Not Recovered/Not Resolved]
